FAERS Safety Report 7898042-7 (Version None)
Quarter: 2011Q4

REPORT INFORMATION
  Report Type: 
  Country: None (occurrence: None)
  Receive Date: 20111107
  Receipt Date: 20111107
  Transmission Date: 20120403
  Serious: Yes (Other)
  Sender: FDA-Public Use
  Company Number: None

PATIENT
  Age: 80 Year
  Sex: Female
  Weight: 77.11 kg

DRUGS (1)
  1. NUVIGIL [Suspect]
     Indication: DEPRESSION
     Dosage: 1 TABLET
     Dates: start: 20110110, end: 20111029

REACTIONS (9)
  - DIZZINESS [None]
  - INSOMNIA [None]
  - CONFUSIONAL STATE [None]
  - LETHARGY [None]
  - APATHY [None]
  - CHEST PAIN [None]
  - PALPITATIONS [None]
  - HEADACHE [None]
  - DISTURBANCE IN ATTENTION [None]
